FAERS Safety Report 20755459 (Version 2)
Quarter: 2024Q4

REPORT INFORMATION
  Report Type: Spontaneous
  Country: BE (occurrence: BE)
  Receive Date: 20220427
  Receipt Date: 20241128
  Transmission Date: 20250115
  Serious: Yes (Hospitalization, Other)
  Sender: BRISTOL-MYERS SQUIBB COMPANY
  Company Number: BE-CELGENE-BEL-20211203726

PATIENT
  Age: 67 Year
  Sex: Female

DRUGS (33)
  1. REVLIMID [Suspect]
     Active Substance: LENALIDOMIDE
     Indication: Plasma cell myeloma
     Dosage: FREQUENCY TEXT: NOT PROVIDED
     Route: 048
     Dates: start: 20211118, end: 20211208
  2. REVLIMID [Suspect]
     Active Substance: LENALIDOMIDE
     Dosage: FREQUENCY TEXT: NOT PROVIDED
     Route: 048
     Dates: start: 20220113
  3. DEXAMETHASONE [Suspect]
     Active Substance: DEXAMETHASONE
     Indication: Plasma cell myeloma
     Dosage: 10 MILLIGRAM
     Dates: start: 20211118, end: 20211202
  4. DEXAMETHASONE [Suspect]
     Active Substance: DEXAMETHASONE
     Indication: COVID-19
     Dosage: 6 MILLIGRAM
     Route: 048
     Dates: start: 20211208
  5. DEXAMETHASONE [Suspect]
     Active Substance: DEXAMETHASONE
     Dosage: 10 MILLIGRAM
     Dates: start: 20220113
  6. CARFILZOMIB [Suspect]
     Active Substance: CARFILZOMIB
     Indication: Plasma cell myeloma
     Dates: start: 20220113
  7. CARFILZOMIB [Suspect]
     Active Substance: CARFILZOMIB
     Dates: start: 20211118, end: 20211202
  8. AMIKACIN SULFATE [Concomitant]
     Active Substance: AMIKACIN SULFATE
     Indication: Febrile neutropenia
     Dates: start: 20210905, end: 20210905
  9. COVID 19 VACCINE [Concomitant]
     Indication: Prophylaxis
     Dosage: FREQUENCY TEXT: NOT PROVIDED
     Dates: start: 20210429, end: 20210429
  10. COVID 19 VACCINE [Concomitant]
     Dosage: FREQUENCY TEXT: NOT PROVIDED
     Dates: start: 20210603, end: 20210603
  11. COVID 19 VACCINE [Concomitant]
     Dosage: FREQUENCY TEXT: NOT PROVIDED
     Dates: start: 20210930, end: 20210930
  12. AUGMENTIN [Concomitant]
     Active Substance: AMOXICILLIN\CLAVULANATE POTASSIUM
     Indication: Prophylaxis
     Dates: start: 20211208, end: 20211215
  13. PANTOPRAZOLE [Concomitant]
     Active Substance: PANTOPRAZOLE
     Indication: Prophylaxis
     Dates: start: 20210127
  14. MOVICOL [Concomitant]
     Active Substance: POLYETHYLENE GLYCOL 3350\POTASSIUM CHLORIDE\SODIUM BICARBONATE\SODIUM CHLORIDE
     Indication: Adverse event
     Dates: start: 20210225, end: 20210913
  15. ZOVIRAX [Concomitant]
     Active Substance: ACYCLOVIR
     Indication: Prophylaxis
     Dates: start: 20210301
  16. SULFAMETHOXAZOLE\TRIMETHOPRIM [Concomitant]
     Active Substance: SULFAMETHOXAZOLE\TRIMETHOPRIM
     Indication: Prophylaxis
     Dates: start: 20210301, end: 20210324
  17. BEFACT [CYANOCOBALAMIN;PYRIDOXINE;THIAMINE] [Concomitant]
     Indication: Vitamin B12 deficiency
     Dates: start: 20210824
  18. ASPIRIN [Concomitant]
     Active Substance: ASPIRIN
     Indication: Prophylaxis
     Dates: start: 20210808, end: 20210824
  19. OXYGEN [Concomitant]
     Active Substance: OXYGEN
     Indication: COVID-19
     Dates: start: 20211208, end: 20211231
  20. ATROVENT [Concomitant]
     Active Substance: IPRATROPIUM BROMIDE
     Indication: COVID-19
     Dates: start: 20211209, end: 20211221
  21. PROVERA [Concomitant]
     Active Substance: MEDROXYPROGESTERONE ACETATE
     Indication: Decreased appetite
     Dates: start: 20211209, end: 20211230
  22. HALDOL [Concomitant]
     Active Substance: HALOPERIDOL
     Indication: Prophylaxis
     Dates: start: 20210826, end: 20210908
  23. LIPEGFILGRASTIM [Concomitant]
     Active Substance: LIPEGFILGRASTIM
     Indication: Prophylaxis
     Dates: start: 20210828, end: 20210828
  24. LIPEGFILGRASTIM [Concomitant]
     Active Substance: LIPEGFILGRASTIM
     Indication: Prophylaxis
     Dates: start: 20210828, end: 20210828
  25. LORAZEPAM [Concomitant]
     Active Substance: LORAZEPAM
     Indication: Anxiety
     Dates: start: 20210830, end: 20210830
  26. PIPERACILLIN SODIUM\TAZOBACTAM SODIUM [Concomitant]
     Active Substance: PIPERACILLIN SODIUM\TAZOBACTAM SODIUM
     Indication: Febrile neutropenia
     Dates: start: 20210904, end: 20210907
  27. VANCOMYCIN [Concomitant]
     Active Substance: VANCOMYCIN
     Indication: Febrile neutropenia
     Dates: start: 20210905, end: 20210907
  28. ULTRA K [Concomitant]
     Indication: Hypokalaemia
     Dates: start: 20210906, end: 20210909
  29. AMOXICILLIN [Concomitant]
     Active Substance: AMOXICILLIN
     Indication: Febrile neutropenia
     Dates: start: 20210907, end: 20210912
  30. NYSTATIN [NYSTATIN;ZINC OXIDE] [Concomitant]
     Indication: Mucosal inflammation
     Dates: start: 20210909, end: 20210913
  31. PERIO AID [CETYLPYRIDINIUM CHLORIDE;CHLORHEXIDINE GLUCONATE] [Concomitant]
     Indication: Mucosal inflammation
     Dates: start: 20210830, end: 20210909
  32. AMINO ACIDS\DEXTROSE\ELECTROLYTES NOS\SOYBEAN OIL [Concomitant]
     Active Substance: AMINO ACIDS\DEXTROSE\ELECTROLYTES NOS\SOYBEAN OIL
     Indication: Decreased appetite
     Dates: start: 20210901, end: 20210910
  33. NADROPARIN CALCIUM [Concomitant]
     Active Substance: NADROPARIN CALCIUM
     Indication: Prophylaxis
     Dates: start: 20211209, end: 20211230

REACTIONS (1)
  - COVID-19 pneumonia [Recovered/Resolved]

NARRATIVE: CASE EVENT DATE: 20211208
